FAERS Safety Report 11878929 (Version 2)
Quarter: 2016Q1

REPORT INFORMATION
  Report Type: Spontaneous
  Country: US (occurrence: US)
  Receive Date: 20151230
  Receipt Date: 20160119
  Transmission Date: 20160526
  Serious: Yes (Hospitalization, Other)
  Sender: FDA-Public Use
  Company Number: US-GLAXOSMITHKLINE-US2015GSK183083

PATIENT
  Sex: Male

DRUGS (5)
  1. OPSUMIT [Concomitant]
     Active Substance: MACITENTAN
  2. WARFARIN [Concomitant]
     Active Substance: WARFARIN
  3. SILDENAFIL. [Concomitant]
     Active Substance: SILDENAFIL
  4. REVATIO [Concomitant]
     Active Substance: SILDENAFIL CITRATE
  5. FLOLAN [Suspect]
     Active Substance: EPOPROSTENOL SODIUM
     Indication: PULMONARY ARTERIAL HYPERTENSION
     Dosage: 35 NG/KG/MIN CO (CONCENTRATION: 60,000 NG/ML, PUMP RATE: 76 ML/DAY, VIAL STRENGTH: 1.5 MG)
     Route: 042
     Dates: start: 20071115

REACTIONS (6)
  - Complication associated with device [Unknown]
  - Device alarm issue [Unknown]
  - Adverse event [Unknown]
  - Hospitalisation [Unknown]
  - Catheter management [Unknown]
  - Catheter removal [Unknown]
